FAERS Safety Report 8490216-X (Version None)
Quarter: 2012Q3

REPORT INFORMATION
  Report Type: 
  Country: None (occurrence: None)
  Receive Date: 20120705
  Receipt Date: 20110926
  Transmission Date: 20120928
  Serious: No
  Sender: FDA-Public Use
  Company Number: CA-BAUSCH-2011BL006514

PATIENT
  Age: 34 Year
  Sex: Male

DRUGS (3)
  1. OPCON-A [Suspect]
     Indication: EYE PRURITUS
     Route: 047
     Dates: start: 20110823, end: 20110825
  2. OPCON-A [Suspect]
     Indication: OCULAR HYPERAEMIA
     Route: 047
     Dates: start: 20110823, end: 20110825
  3. SPERSALLERG [Concomitant]
     Indication: EYE PRURITUS

REACTIONS (3)
  - EYE PAIN [None]
  - OCULAR HYPERAEMIA [None]
  - CONDITION AGGRAVATED [None]
